FAERS Safety Report 15733736 (Version 1)
Quarter: 2018Q4

REPORT INFORMATION
  Report Type: Spontaneous
  Country: US (occurrence: US)
  Receive Date: 20181218
  Receipt Date: 20181218
  Transmission Date: 20190205
  Serious: No
  Sender: FDA-Public Use
  Company Number: US-BIOGEN-2018BI00659361

PATIENT
  Age: 46 Year
  Sex: Female

DRUGS (2)
  1. TECFIDERA [Suspect]
     Active Substance: DIMETHYL FUMARATE
     Dosage: STARTING DOSE
     Route: 048
     Dates: start: 20130101, end: 201305
  2. TECFIDERA [Suspect]
     Active Substance: DIMETHYL FUMARATE
     Indication: MULTIPLE SCLEROSIS
     Dosage: MAINTENANCE DOSE
     Route: 048
     Dates: start: 201305

REACTIONS (10)
  - Sinusitis [Not Recovered/Not Resolved]
  - Intentional underdose [Unknown]
  - Lymphocyte count decreased [Unknown]
  - Drug intolerance [Recovered/Resolved]
  - Influenza [Unknown]
  - Food poisoning [Unknown]
  - Anxiety [Recovered/Resolved]
  - Nasopharyngitis [Unknown]
  - Lymphocyte percentage decreased [Unknown]
  - White blood cell count decreased [Unknown]

NARRATIVE: CASE EVENT DATE: 2013
